FAERS Safety Report 15607442 (Version 5)
Quarter: 2019Q1

REPORT INFORMATION
  Report Type: Spontaneous
  Country: US (occurrence: US)
  Receive Date: 20181112
  Receipt Date: 20190102
  Transmission Date: 20190417
  Serious: Yes (Other)
  Sender: FDA-Public Use
  Company Number: US-PFIZER INC-2018457152

PATIENT
  Age: 31 Year
  Sex: Female

DRUGS (11)
  1. QUETIAPINE. [Interacting]
     Active Substance: QUETIAPINE
     Indication: BORDERLINE PERSONALITY DISORDER
  2. LITHIUM. [Suspect]
     Active Substance: LITHIUM
     Indication: BORDERLINE PERSONALITY DISORDER
     Dosage: UNK
  3. LITHIUM. [Suspect]
     Active Substance: LITHIUM
     Indication: BIPOLAR DISORDER
  4. RISPERIDONE. [Interacting]
     Active Substance: RISPERIDONE
     Indication: BIPOLAR DISORDER
     Dosage: UNK
  5. RISPERIDONE. [Interacting]
     Active Substance: RISPERIDONE
     Indication: BORDERLINE PERSONALITY DISORDER
  6. ALPRAZOLAM. [Suspect]
     Active Substance: ALPRAZOLAM
     Indication: BORDERLINE PERSONALITY DISORDER
     Dosage: UNK
  7. HYDROXYZINE PAMOATE. [Interacting]
     Active Substance: HYDROXYZINE PAMOATE
     Indication: BORDERLINE PERSONALITY DISORDER
     Dosage: UNK
  8. PHYSOSTIGMINE [Interacting]
     Active Substance: PHYSOSTIGMINE
     Dosage: 1 MG, UNK
  9. QUETIAPINE. [Interacting]
     Active Substance: QUETIAPINE
     Indication: BIPOLAR DISORDER
     Dosage: UNK
  10. AMITRIPTYLINE [Interacting]
     Active Substance: AMITRIPTYLINE
     Indication: BIPOLAR DISORDER
     Dosage: UNK
  11. PHYSOSTIGMINE [Interacting]
     Active Substance: PHYSOSTIGMINE
     Indication: ANTICHOLINERGIC SYNDROME
     Dosage: 1 MG, UNK

REACTIONS (3)
  - Drug interaction [Unknown]
  - Overdose [Unknown]
  - Dystonia [Unknown]
